FAERS Safety Report 12751000 (Version 1)
Quarter: 2016Q3

REPORT INFORMATION
  Report Type: Spontaneous
  Country: US (occurrence: US)
  Receive Date: 20160915
  Receipt Date: 20160915
  Transmission Date: 20161109
  Serious: Yes (Other)
  Sender: FDA-Public Use
  Company Number: US-ASTELLAS-2016US001780

PATIENT
  Sex: Male

DRUGS (1)
  1. XTANDI [Suspect]
     Active Substance: ENZALUTAMIDE
     Indication: PROSTATE CANCER
     Dosage: 40 MG, 4 TIMES DAILY (160 MG)
     Route: 048
     Dates: start: 20151101, end: 20160612

REACTIONS (6)
  - Drug dose omission [Unknown]
  - Malignant neoplasm progression [Unknown]
  - Urinary incontinence [Unknown]
  - Nightmare [Unknown]
  - Inappropriate schedule of drug administration [Unknown]
  - Constipation [Unknown]
